FAERS Safety Report 8954159 (Version 1)
Quarter: 2012Q4

REPORT INFORMATION
  Report Type: 
  Country: TH (occurrence: TH)
  Receive Date: 20121207
  Receipt Date: 20121207
  Transmission Date: 20130627
  Serious: Yes (Other)
  Sender: FDA-Public Use
  Company Number: TH-JNJFOC-20061102746

PATIENT
  Age: 29 Year
  Sex: Female

DRUGS (3)
  1. IBUPROFEN [Suspect]
     Indication: TENSION HEADACHE
     Route: 048
  2. IBUPROFEN [Suspect]
     Indication: TENSION HEADACHE
     Route: 048
  3. IBUPROFEN [Suspect]
     Indication: TENSION HEADACHE
     Route: 048

REACTIONS (3)
  - Periorbital oedema [Recovered/Resolved]
  - Eyelid oedema [Recovered/Resolved]
  - Pruritus [Recovered/Resolved]
